FAERS Safety Report 16466817 (Version 2)
Quarter: 2020Q2

REPORT INFORMATION
  Report Type: Spontaneous
  Country: CH (occurrence: CH)
  Receive Date: 20190623
  Receipt Date: 20200401
  Transmission Date: 20200713
  Serious: Yes (Other)
  Sender: FDA-Public Use
  Company Number: CH-BEH-2019100871

PATIENT
  Age: 28 Year
  Sex: Female

DRUGS (7)
  1. RHOPHYLAC [Suspect]
     Active Substance: HUMAN RHO(D) IMMUNE GLOBULIN
     Dosage: 300
     Route: 065
     Dates: start: 20160929
  2. RHOPHYLAC [Suspect]
     Active Substance: HUMAN RHO(D) IMMUNE GLOBULIN
     Dosage: 300
     Route: 065
     Dates: start: 20160929
  3. ELEVIT                             /01730301/ [Concomitant]
     Active Substance: FOLIC ACID\IRON\MINERALS\VITAMINS
  4. ESOMEP                             /00661201/ [Concomitant]
     Indication: GASTRITIS PROPHYLAXIS
  5. RHOPHYLAC [Suspect]
     Active Substance: HUMAN RHO(D) IMMUNE GLOBULIN
     Indication: PROPHYLAXIS AGAINST RH ISOIMMUNISATION
     Dosage: 300
     Route: 065
     Dates: start: 20160701
  6. RHOPHYLAC [Suspect]
     Active Substance: HUMAN RHO(D) IMMUNE GLOBULIN
     Indication: PROPHYLAXIS AGAINST RH ISOIMMUNISATION
     Dosage: 300
     Route: 065
     Dates: start: 20160701
  7. ESOMEP                             /00661201/ [Concomitant]
     Indication: GASTRITIS PROPHYLAXIS

REACTIONS (3)
  - No adverse event [Unknown]
  - Drug ineffective [Unknown]
  - Exposure during pregnancy [Unknown]
